FAERS Safety Report 21509326 (Version 1)
Quarter: 2022Q4

REPORT INFORMATION
  Report Type: Spontaneous
  Country: SI (occurrence: SI)
  Receive Date: 20221026
  Receipt Date: 20221026
  Transmission Date: 20230112
  Serious: Yes (Other)
  Sender: FDA-Public Use
  Company Number: SI-002147023-NVSC2022SI233889

PATIENT
  Sex: Female

DRUGS (2)
  1. UNSPECIFIED INGREDIENT [Suspect]
     Active Substance: UNSPECIFIED INGREDIENT
     Indication: Product used for unknown indication
     Dosage: UNK
  2. ACYCLOVIR [Concomitant]
     Active Substance: ACYCLOVIR
     Indication: Product used for unknown indication
     Dosage: 200 MG

REACTIONS (11)
  - Pulmonary embolism [Unknown]
  - Left atrial enlargement [Unknown]
  - Sinus tachycardia [Unknown]
  - Syncope [Unknown]
  - Circulatory collapse [Unknown]
  - Paraesthesia [Unknown]
  - Presyncope [Unknown]
  - Palpitations [Unknown]
  - Chest pain [Unknown]
  - Nausea [Unknown]
  - Dyspnoea [Unknown]
